FAERS Safety Report 18208259 (Version 3)
Quarter: 2021Q1

REPORT INFORMATION
  Report Type: Spontaneous
  Country: FR (occurrence: FR)
  Receive Date: 20200828
  Receipt Date: 20210323
  Transmission Date: 20210419
  Serious: Yes (Death, Hospitalization, Other)
  Sender: FDA-Public Use
  Company Number: FR-SA-2020SA187390

PATIENT
  Age: 55 Year
  Sex: Female
  Weight: 93 kg

DRUGS (5)
  1. XARELTO [Concomitant]
     Active Substance: RIVAROXABAN
     Indication: ATRIAL FIBRILLATION
     Dosage: 0?0?1 FOR FA
  2. LAROXYL [Concomitant]
     Active Substance: AMITRIPTYLINE HYDROCHLORIDE
     Dosage: 0?0?0?1
  3. FABRAZYME [Suspect]
     Active Substance: AGALSIDASE BETA
     Dosage: 3 VIALS, QOW (1 INFUSION EVERY 14 DAYS)
     Route: 041
  4. CANDESARTAN. [Concomitant]
     Active Substance: CANDESARTAN
  5. LYRICA [Concomitant]
     Active Substance: PREGABALIN
     Dosage: 200 1?1?1

REACTIONS (4)
  - Road traffic accident [Fatal]
  - Multiple organ dysfunction syndrome [Fatal]
  - Somnambulism [Not Recovered/Not Resolved]
  - Shock haemorrhagic [Fatal]

NARRATIVE: CASE EVENT DATE: 20200310
